FAERS Safety Report 6120838-2 (Version None)
Quarter: 2009Q1

REPORT INFORMATION
  Report Type: 
  Country: None (occurrence: None)
  Receive Date: 20090317
  Receipt Date: 20090304
  Transmission Date: 20090719
  Serious: Yes (Life-Threatening, Hospitalization)
  Sender: FDA-Public Use
  Company Number: DE-ROCHE-619971

PATIENT
  Age: 52 Year
  Sex: Male
  Weight: 101 kg

DRUGS (3)
  1. XELODA [Suspect]
     Route: 048
     Dates: start: 20080901, end: 20081224
  2. ATENOLOL [Concomitant]
     Route: 048
     Dates: start: 20040101
  3. METHYLDOPA [Concomitant]
     Route: 048
     Dates: start: 19990101

REACTIONS (1)
  - DIABETES MELLITUS [None]
